FAERS Safety Report 6782676-7 (Version None)
Quarter: 2010Q2

REPORT INFORMATION
  Report Type: 
  Country: None (occurrence: None)
  Receive Date: 20100621
  Receipt Date: 20100614
  Transmission Date: 20101027
  Serious: Yes (Death)
  Sender: FDA-Public Use
  Company Number: FR-ELI_LILLY_AND_COMPANY-FR201006000224

PATIENT
  Sex: Male

DRUGS (1)
  1. ALIMTA [Suspect]
     Dates: start: 20100101

REACTIONS (3)
  - AGITATION [None]
  - CONFUSIONAL STATE [None]
  - DEATH [None]
